FAERS Safety Report 15208413 (Version 2)
Quarter: 2018Q3

REPORT INFORMATION
  Report Type: Spontaneous
  Country: US (occurrence: US)
  Receive Date: 20180727
  Receipt Date: 20180917
  Transmission Date: 20181010
  Serious: No
  Sender: FDA-Public Use
  Company Number: US-ALKERMES INC.-ALK-2018-003767

PATIENT
  Age: 30 Year
  Sex: Male

DRUGS (2)
  1. ARISTADA [Suspect]
     Active Substance: ARIPIPRAZOLE LAUROXIL
     Dosage: 441 MG, QMO
     Route: 030
  2. ARISTADA [Suspect]
     Active Substance: ARIPIPRAZOLE LAUROXIL
     Indication: SCHIZOPHRENIA
     Dosage: 662 MG, QMO
     Route: 030
     Dates: end: 20180803

REACTIONS (3)
  - Sexually inappropriate behaviour [Recovering/Resolving]
  - Libido increased [Recovering/Resolving]
  - Compulsive sexual behaviour [Recovering/Resolving]

NARRATIVE: CASE EVENT DATE: 201806
